FAERS Safety Report 18589547 (Version 1)
Quarter: 2020Q4

REPORT INFORMATION
  Report Type: Spontaneous
  Country: SG (occurrence: SG)
  Receive Date: 20201208
  Receipt Date: 20201208
  Transmission Date: 20210114
  Serious: Yes (Other)
  Sender: FDA-Public Use
  Company Number: ALC2020SG009745

PATIENT
  Sex: Male

DRUGS (1)
  1. SYSTANE HYDRATION PF PRESERVATIVE FREE [Suspect]
     Active Substance: POLYETHYLENE GLYCOL 400\PROPYLENE GLYCOL
     Indication: PRODUCT USED FOR UNKNOWN INDICATION
     Dosage: UNK
     Route: 065

REACTIONS (3)
  - Eye infection bacterial [Recovered/Resolved with Sequelae]
  - Eye ulcer [Recovered/Resolved with Sequelae]
  - Scar [Not Recovered/Not Resolved]

NARRATIVE: CASE EVENT DATE: 20201017
